FAERS Safety Report 9351861 (Version 3)
Quarter: 2014Q1

REPORT INFORMATION
  Report Type: Spontaneous
  Country: FR (occurrence: FR)
  Receive Date: 20130617
  Receipt Date: 20140306
  Transmission Date: 20141002
  Serious: Yes (Hospitalization, Other)
  Sender: FDA-Public Use
  Company Number: FR-TEVA-412799ISR

PATIENT
  Age: 75 Year
  Sex: Male

DRUGS (9)
  1. FUROSEMIDE TEVA 40 MG SCORED TABS [Suspect]
     Dosage: 1 DOSAGE FORMS DAILY;
     Route: 048
     Dates: start: 20130605
  2. ATROVENT [Concomitant]
  3. CARDENSIEL [Concomitant]
  4. COVERSYL [Concomitant]
  5. DIFFU K [Concomitant]
  6. INEXIUM [Concomitant]
  7. INORIAL [Concomitant]
  8. PREVISCAN [Concomitant]
  9. NITRIDERM [Concomitant]

REACTIONS (5)
  - Cardiac failure [Recovering/Resolving]
  - Somnolence [Recovering/Resolving]
  - Hypokinesia [Recovering/Resolving]
  - Oedema peripheral [Unknown]
  - Cardiomegaly [Unknown]
